FAERS Safety Report 22755043 (Version 2)
Quarter: 2024Q1

REPORT INFORMATION
  Report Type: Report from Study
  Country: US (occurrence: US)
  Receive Date: 20230727
  Receipt Date: 20240104
  Transmission Date: 20240409
  Serious: No
  Sender: FDA-Public Use
  Company Number: US-002147023-NVSC2023US165098

PATIENT
  Sex: Female

DRUGS (1)
  1. PIQRAY [Suspect]
     Active Substance: ALPELISIB
     Indication: Breast cancer
     Dosage: 300 MG, DAILY
     Route: 065

REACTIONS (4)
  - Urinary tract infection [Recovering/Resolving]
  - Rash [Not Recovered/Not Resolved]
  - Pruritus [Unknown]
  - Rash macular [Unknown]
